FAERS Safety Report 17413085 (Version 1)
Quarter: 2020Q1

REPORT INFORMATION
  Report Type: Spontaneous
  Country: US (occurrence: US)
  Receive Date: 20200129
  Receipt Date: 20200129
  Transmission Date: 20200409
  Serious: Yes (Hospitalization)
  Sender: FDA-Public Use
  Company Number: None

PATIENT
  Sex: Male

DRUGS (1)
  1. NEORAL [Suspect]
     Active Substance: CYCLOSPORINE
     Dosage: ?          OTHER FREQUENCY:1 TAB EVERY DAY;?
     Route: 048
     Dates: start: 2018

REACTIONS (2)
  - Therapy cessation [None]
  - Economic problem [None]
